FAERS Safety Report 7469182-1 (Version None)
Quarter: 2011Q2

REPORT INFORMATION
  Report Type: 
  Country: None (occurrence: None)
  Receive Date: 20110429
  Receipt Date: 20110425
  Transmission Date: 20111010
  Serious: Yes (Death, Other)
  Sender: FDA-Public Use
  Company Number: 2011MA004546

PATIENT
  Age: 22 Year
  Sex: Female

DRUGS (2)
  1. OXYCODONE HCL [Suspect]
     Indication: OVERDOSE
  2. CLOZAPINE [Suspect]
     Indication: OVERDOSE

REACTIONS (1)
  - MULTIPLE DRUG OVERDOSE [None]
